FAERS Safety Report 12265202 (Version 1)
Quarter: 2016Q2

REPORT INFORMATION
  Report Type: Spontaneous
  Country: US (occurrence: US)
  Receive Date: 20160413
  Receipt Date: 20160413
  Transmission Date: 20160815
  Serious: No
  Sender: FDA-Public Use
  Company Number: GXBR2016US001019

PATIENT
  Sex: Female
  Weight: 55.33 kg

DRUGS (3)
  1. CEFDINIR. [Suspect]
     Active Substance: CEFDINIR
     Indication: STREPTOCOCCAL INFECTION
     Dosage: 300 MG, BID
     Route: 048
     Dates: start: 20160315
  2. CEFDINIR. [Suspect]
     Active Substance: CEFDINIR
     Indication: NASAL CONGESTION
  3. CORICIDIN [Suspect]
     Active Substance: ACETAMINOPHEN\CHLORPHENIRAMINE MALEATE
     Dosage: UNK DF, UNK

REACTIONS (2)
  - Diarrhoea [Not Recovered/Not Resolved]
  - Faeces discoloured [Not Recovered/Not Resolved]
